FAERS Safety Report 8379083-2 (Version None)
Quarter: 2012Q1

REPORT INFORMATION
  Report Type: 
  Country: None (occurrence: None)
  Receive Date: 20120323
  Receipt Date: 20110404
  Transmission Date: 20120608
  Serious: Yes (Death)
  Sender: FDA-Public Use
  Company Number: 163-21880-11032786

PATIENT
  Age: 54 Year
  Sex: Male

DRUGS (3)
  1. REVLIMID [Suspect]
     Indication: MULTIPLE MYELOMA
     Dosage: 25 MG, DAILY FOR 21 DAYS, PO 25 MG, DAILY FOR 21 DAYS, PO
     Route: 048
     Dates: start: 20090601, end: 20100310
  2. REVLIMID [Suspect]
     Indication: MULTIPLE MYELOMA
     Dosage: 25 MG, DAILY FOR 21 DAYS, PO 25 MG, DAILY FOR 21 DAYS, PO
     Route: 048
     Dates: start: 20100901, end: 20110301
  3. DECADRON [Concomitant]

REACTIONS (3)
  - ASTHENIA [None]
  - PNEUMONIA RESPIRATORY SYNCYTIAL VIRAL [None]
  - RESPIRATORY DISTRESS [None]
